FAERS Safety Report 24777696 (Version 1)
Quarter: 2024Q4

REPORT INFORMATION
  Report Type: Spontaneous
  Country: CZ (occurrence: CZ)
  Receive Date: 20241226
  Receipt Date: 20241226
  Transmission Date: 20250115
  Serious: Yes (Other)
  Sender: ELI LILLY AND COMPANY
  Company Number: CZ-ELI_LILLY_AND_COMPANY-CZ202412016693

PATIENT
  Age: 29 Year
  Sex: Male

DRUGS (3)
  1. LEBRIKIZUMAB [Suspect]
     Active Substance: LEBRIKIZUMAB
     Indication: Dermatitis atopic
     Dosage: 250 MG, UNKNOWN
     Route: 058
     Dates: start: 20241003
  2. LEBRIKIZUMAB [Suspect]
     Active Substance: LEBRIKIZUMAB
     Dosage: 250 MG, UNKNOWN
     Route: 058
     Dates: start: 20241017, end: 20241121
  3. ALLOPURINOL [Concomitant]
     Active Substance: ALLOPURINOL
     Indication: Product used for unknown indication
     Dosage: UNK, UNKNOWN
     Route: 065

REACTIONS (1)
  - Conjunctivitis [Unknown]

NARRATIVE: CASE EVENT DATE: 20241018
